FAERS Safety Report 13118902 (Version 1)
Quarter: 2017Q1

REPORT INFORMATION
  Report Type: Spontaneous
  Country: GB (occurrence: GB)
  Receive Date: 20170116
  Receipt Date: 20170116
  Transmission Date: 20170428
  Serious: Yes (Other)
  Sender: FDA-Public Use
  Company Number: GB-MYLANLABS-2017M1002077

PATIENT

DRUGS (2)
  1. SERENOA [Concomitant]
     Indication: PRODUCT USED FOR UNKNOWN INDICATION
     Dosage: UNK
  2. FINASTERIDE. [Suspect]
     Active Substance: FINASTERIDE
     Indication: BENIGN PROSTATIC HYPERPLASIA
     Dosage: IN MORNING.
     Route: 048
     Dates: start: 20161124, end: 20161202

REACTIONS (2)
  - Dysuria [Recovering/Resolving]
  - Genital pain [Recovering/Resolving]

NARRATIVE: CASE EVENT DATE: 20161128
